FAERS Safety Report 9339249 (Version 3)
Quarter: 2013Q4

REPORT INFORMATION
  Report Type: Spontaneous
  Country: US (occurrence: None)
  Receive Date: 20130605
  Receipt Date: 20131107
  Transmission Date: 20140711
  Serious: Yes (Hospitalization, Other)
  Sender: FDA-Public Use
  Company Number: 2012-001694

PATIENT
  Age: 67 Year
  Sex: Female
  Weight: 63.5 kg

DRUGS (19)
  1. ACTONEL (RISEDRONATE SODIUM) TABLET, 35MG [Suspect]
     Indication: OSTEOPOROSIS
     Route: 048
     Dates: start: 200406, end: 200501
  2. ACTONEL (RISEDRONATE SODIUM) TABLET, 35MG [Suspect]
     Indication: OSTEOPOROSIS PROPHYLAXIS
     Route: 048
     Dates: start: 200406, end: 200501
  3. ACTONEL (RISEDRONATE SODIUM) TABLET, 35MG [Suspect]
     Route: 048
     Dates: start: 200406, end: 200501
  4. FOSAMAX (ALENDRONATE SODIUM) [Suspect]
     Indication: OSTEOPOROSIS
     Route: 048
     Dates: start: 200401, end: 200406
  5. FOSAMAX (ALENDRONATE SODIUM) [Suspect]
     Indication: OSTEOPOROSIS PROPHYLAXIS
     Route: 048
     Dates: start: 200401, end: 200406
  6. FOSAMAX (ALENDRONATE SODIUM) [Suspect]
     Route: 048
     Dates: start: 200401, end: 200406
  7. FOSAMAX PLUS D (ALENDRONATE SODIUM, COLECALCIFEROL) [Suspect]
     Indication: OSTEOPOROSIS
     Dosage: 1DF, 1/WEEK
     Dates: start: 200602
  8. FOSAMAX PLUS D (ALENDRONATE SODIUM, COLECALCIFEROL) [Suspect]
     Indication: OSTEOPOROSIS PROPHYLAXIS
     Dosage: 1DF, 1/WEEK
     Dates: start: 200602
  9. FOSAMAX PLUS D (ALENDRONATE SODIUM, COLECALCIFEROL) [Suspect]
     Dosage: 1DF, 1/WEEK
     Dates: start: 200602
  10. BONIVA (IBANDRONATE SODIUM) [Suspect]
     Indication: OSTEOPOROSIS
     Dosage: 150 MG ONCE MONTHY, UNKNOWN
     Dates: start: 200706, end: 201012
  11. BONIVA (IBANDRONATE SODIUM) [Suspect]
     Indication: OSTEOPOROSIS PROPHYLAXIS
     Dosage: 150 MG ONCE MONTHY, UNKNOWN
     Dates: start: 200706, end: 201012
  12. BONIVA (IBANDRONATE SODIUM) [Suspect]
     Dosage: 150 MG ONCE MONTHY, UNKNOWN
     Dates: start: 200706, end: 201012
  13. HYDROCHLOROTHIAZIDE (HYDROCHLOROTHIAZIDE) [Concomitant]
  14. NORVASC (AMLODIPINE BESILATE) [Concomitant]
  15. BEXTRA /01400702/ (PARECOXIB SODIUM) [Concomitant]
  16. PREVACID (LANSOPRAZOLE) [Concomitant]
  17. WELLBUTRIN (BUPROPION HYDROCHLORIDE) [Concomitant]
  18. CLIMARA (ESTRADIOL) [Concomitant]
  19. BETOPIC S (BETAXOLOL HYDROCHLORIDE) [Concomitant]

REACTIONS (12)
  - Femur fracture [None]
  - Fall [None]
  - Pathological fracture [None]
  - Stress fracture [None]
  - Pain in extremity [None]
  - Bone disorder [None]
  - Low turnover osteopathy [None]
  - Spinal osteoarthritis [None]
  - Fibromyalgia [None]
  - Spinal column stenosis [None]
  - Groin pain [None]
  - Bursitis [None]
